FAERS Safety Report 14879091 (Version 1)
Quarter: 2018Q2

REPORT INFORMATION
  Report Type: Spontaneous
  Country: US (occurrence: US)
  Receive Date: 20180511
  Receipt Date: 20180511
  Transmission Date: 20180711
  Serious: Yes (Hospitalization, Other)
  Sender: FDA-Public Use
  Company Number: US-DRREDDYS-USA/USA/18/0098037

PATIENT
  Sex: Female

DRUGS (1)
  1. AUGMENTIN [Suspect]
     Active Substance: AMOXICILLIN\CLAVULANATE POTASSIUM
     Indication: PRODUCT USED FOR UNKNOWN INDICATION
     Route: 065
     Dates: start: 2017

REACTIONS (6)
  - Drug intolerance [Unknown]
  - Pleural effusion [Unknown]
  - Drug hypersensitivity [Unknown]
  - Pneumonia [Unknown]
  - Dysphagia [Unknown]
  - Rash [Unknown]

NARRATIVE: CASE EVENT DATE: 2017
